FAERS Safety Report 7299876-2 (Version None)
Quarter: 2011Q1

REPORT INFORMATION
  Report Type: 
  Country: None (occurrence: None)
  Receive Date: 20110217
  Receipt Date: 20110208
  Transmission Date: 20110831
  Serious: Yes (Other)
  Sender: FDA-Public Use
  Company Number: US-ASTRAZENECA-2011SE07595

PATIENT
  Sex: Female

DRUGS (4)
  1. METHADONE HYDROCHLORIDE [Concomitant]
  2. VIT D [Concomitant]
  3. ATENOLOL [Concomitant]
  4. ARIMIDEX [Suspect]
     Route: 048

REACTIONS (2)
  - LUNG NEOPLASM [None]
  - RASH [None]
